FAERS Safety Report 9522959 (Version 1)
Quarter: 2013Q3

REPORT INFORMATION
  Report Type: Spontaneous
  Country: DE (occurrence: None)
  Receive Date: 20130911
  Receipt Date: 20130911
  Transmission Date: 20140515
  Serious: No
  Sender: FDA-Public Use
  Company Number: AEDEU201200488

PATIENT
  Age: 49 Year
  Sex: Male

DRUGS (10)
  1. GAMUNEX [Suspect]
     Indication: CHRONIC INFLAMMATORY DEMYELINATING POLYRADICULONEUROPATHY
     Route: 042
     Dates: start: 2009
  2. TILIDIN [Concomitant]
  3. DICLOFENAC [Concomitant]
  4. PANTOPRAZOL [Concomitant]
  5. TAMSULOSIN [Concomitant]
  6. TRAMADOL [Concomitant]
  7. NOVAMINSULFON [Concomitant]
  8. MARCUMAR [Concomitant]
  9. DOXEPIN [Concomitant]
  10. MOVICOL /01625101/ [Concomitant]

REACTIONS (7)
  - Feeling hot [None]
  - Arthralgia [None]
  - Headache [None]
  - Diarrhoea [None]
  - Infusion site swelling [None]
  - Pruritus [None]
  - Erythema [None]
